FAERS Safety Report 9578764 (Version 1)
Quarter: 2013Q4

REPORT INFORMATION
  Report Type: Spontaneous
  Country: US (occurrence: US)
  Receive Date: 20131001
  Receipt Date: 20131001
  Transmission Date: 20140711
  Serious: No
  Sender: FDA-Public Use
  Company Number: US-AMGEN-USASP2013014765

PATIENT
  Age: 49 Year
  Sex: Male
  Weight: 88.44 kg

DRUGS (3)
  1. ENBREL [Suspect]
     Indication: PSORIASIS
     Dosage: UNK
     Dates: start: 20080228, end: 20120228
  2. ADVAIR [Concomitant]
     Dosage: UNK
  3. VENTOLIN                           /00139501/ [Concomitant]
     Dosage: UNK

REACTIONS (2)
  - Condition aggravated [Recovering/Resolving]
  - Drug effect decreased [Recovering/Resolving]
